FAERS Safety Report 5069136-9 (Version None)
Quarter: 2006Q3

REPORT INFORMATION
  Report Type: 
  Country: None (occurrence: None)
  Receive Date: 20060731
  Receipt Date: 20060720
  Transmission Date: 20061208
  Serious: Yes (Hospitalization, Other)
  Sender: FDA-Public Use
  Company Number: HQWYE781503AUG04

PATIENT
  Age: 64 Year
  Sex: Female
  Weight: 68.1 kg

DRUGS (4)
  1. PREMPRO [Suspect]
  2. ESTRATEST (ESTROGENS/METHYLTESTOSTERONE, ) [Suspect]
  3. PREMARIN [Suspect]
  4. PROVERA [Suspect]

REACTIONS (11)
  - AORTIC ARTERIOSCLEROSIS [None]
  - BONE DISORDER [None]
  - BREAST CANCER METASTATIC [None]
  - LYMPHOMA [None]
  - METASTASES TO LYMPH NODES [None]
  - METASTASIS [None]
  - MULTIPLE MYELOMA [None]
  - OESTROGEN RECEPTOR ASSAY POSITIVE [None]
  - PAPILLOMA [None]
  - PROGESTERONE RECEPTOR ASSAY POSITIVE [None]
  - VULVOVAGINAL DISORDER [None]
